FAERS Safety Report 10374808 (Version 1)
Quarter: 2014Q1

REPORT INFORMATION
  Report Type: Spontaneous
  Country: US (occurrence: None)
  Receive Date: 20140306
  Receipt Date: 20140306
  Transmission Date: 20141002
  Serious: Yes (Hospitalization)
  Sender: FDA-Public Use
  Company Number: 163-21880-13122071

PATIENT
  Age: 82 Year
  Sex: Male

DRUGS (11)
  1. REVLIMID (LENALIDOMIDE) (CAPSULES) [Suspect]
     Indication: B-CELL LYMPHOMA
     Route: 048
     Dates: start: 20130605, end: 20131126
  2. NAMENDA (MEMANTINE HYDROCHLORIDE) (UNKNOWN) [Concomitant]
  3. EFFEXOR XR (VENLAFAXINE HYDROCHLORIDE) (UNKNOWN) [Concomitant]
  4. ARICEPT (DONEPEZIL HYDROCHLORIDE) (UNKNOWN) [Concomitant]
  5. SIMVASTATIN (SIMVASTATIN) (UNKNOWN) [Concomitant]
  6. ASA (ACETYLSALICYLIC ACID) (UNKNOWN) [Concomitant]
  7. OCCUVITE (OCUVITE) (UNKNOWN) [Concomitant]
  8. PAMIDRONATE (PAMIDRONATE DISODIUM) (UNKNOWN) [Concomitant]
  9. RITUXAN (RITUXIMAB) (UNKNOWN) [Concomitant]
  10. TYLENOL (PARACETAMOL) (UNKNOWN) [Concomitant]
  11. VITAMIN D (ERGOCALCIFEROL) (UNKNOWN) [Concomitant]

REACTIONS (2)
  - Dehydration [None]
  - Thirst decreased [None]
